FAERS Safety Report 25037012 (Version 2)
Quarter: 2025Q1

REPORT INFORMATION
  Report Type: Report from Study
  Country: US (occurrence: US)
  Receive Date: 20250304
  Receipt Date: 20250328
  Transmission Date: 20250409
  Serious: Yes (Hospitalization, Other)
  Sender: ROCHE
  Company Number: US-ROCHE-10000208846

PATIENT
  Sex: Female

DRUGS (9)
  1. RITUXAN [Suspect]
     Active Substance: RITUXIMAB
     Indication: Lupus nephritis
     Route: 065
  2. CELLCEPT [Suspect]
     Active Substance: MYCOPHENOLATE MOFETIL
     Indication: Lupus nephritis
     Route: 065
  3. CELLCEPT [Suspect]
     Active Substance: MYCOPHENOLATE MOFETIL
     Route: 065
  4. PREDNISONE [Concomitant]
     Active Substance: PREDNISONE
     Indication: Lupus nephritis
  5. PREDNISONE [Concomitant]
     Active Substance: PREDNISONE
     Indication: Rheumatoid arthritis
  6. IBUPROFEN [Concomitant]
     Active Substance: IBUPROFEN
     Indication: Pain
  7. OXYCODONE [Concomitant]
     Active Substance: OXYCODONE
  8. LISINOPRIL [Concomitant]
     Active Substance: LISINOPRIL
     Indication: Lupus nephritis
  9. renal vitamin [Concomitant]

REACTIONS (24)
  - Nasopharyngitis [Unknown]
  - Immune system disorder [Unknown]
  - Illness [Unknown]
  - Gastrointestinal disorder [Unknown]
  - Herpes zoster [Unknown]
  - Lupus nephritis [Unknown]
  - Vasculitis [Unknown]
  - Thrombocytopenia [Unknown]
  - Antiphospholipid syndrome [Unknown]
  - Peripheral swelling [Unknown]
  - Joint swelling [Unknown]
  - Off label use [Unknown]
  - Pain [Unknown]
  - Weight increased [Unknown]
  - Renal failure [Unknown]
  - Anaemia [Unknown]
  - Amnesia [Unknown]
  - Carpal tunnel syndrome [Unknown]
  - Maternal exposure during pregnancy [Unknown]
  - Immunosuppression [Unknown]
  - Thrombosis [Unknown]
  - Cardiovascular disorder [Unknown]
  - Hypertension [Unknown]
  - Herpes zoster [Unknown]

NARRATIVE: CASE EVENT DATE: 20240101
